FAERS Safety Report 23834779 (Version 1)
Quarter: 2024Q2

REPORT INFORMATION
  Report Type: Spontaneous
  Country: US (occurrence: US)
  Receive Date: 20240509
  Receipt Date: 20240509
  Transmission Date: 20240715
  Serious: Yes (Death, Other)
  Sender: FDA-Public Use
  Company Number: US-ADVANZ PHARMA-202404003878

PATIENT

DRUGS (2)
  1. DIGOXIN [Suspect]
     Active Substance: DIGOXIN
     Dosage: UNK
     Route: 037
  2. BUPIVACAINE [Suspect]
     Active Substance: BUPIVACAINE
     Indication: Anaesthesia
     Dosage: UNK

REACTIONS (12)
  - Brain death [Fatal]
  - Apnoea [Unknown]
  - Facial paralysis [Unknown]
  - Paralysis [Unknown]
  - Communication disorder [Unknown]
  - Dizziness [Unknown]
  - Vision blurred [Unknown]
  - Headache [Unknown]
  - Asthenia [Unknown]
  - Exposure during pregnancy [Unknown]
  - Wrong product administered [Unknown]
  - Incorrect route of product administration [Unknown]
